FAERS Safety Report 5194977-7 (Version None)
Quarter: 2006Q4

REPORT INFORMATION
  Report Type: 
  Country: None (occurrence: None)
  Receive Date: 20061227
  Receipt Date: 20061212
  Transmission Date: 20070319
  Serious: Yes (Hospitalization)
  Sender: FDA-Public Use
  Company Number: OXER20060087

PATIENT
  Age: 77 Year
  Sex: Male
  Weight: 93.6 kg

DRUGS (9)
  1. OXYCODONE ER [Suspect]
     Indication: CANCER PAIN
     Dosage: 40 MG BID PO
     Route: 048
     Dates: start: 20051004, end: 20051113
  2. OXYCODONE HCL [Suspect]
     Indication: BREAKTHROUGH PAIN
     Dosage: 5 MG PRN PO
     Route: 048
     Dates: start: 20050909, end: 20051113
  3. COUMADIN [Concomitant]
  4. TOPROL-XL [Concomitant]
  5. HYDROCHLOROTHIAZIDE [Concomitant]
  6. SENOKOT [Concomitant]
  7. VISTARIL [Concomitant]
  8. LASIX [Concomitant]
  9. TRAZODONE HCL [Concomitant]

REACTIONS (22)
  - AGGRESSION [None]
  - ASTHENIA [None]
  - CARDIOMEGALY [None]
  - CONFUSIONAL STATE [None]
  - DEHYDRATION [None]
  - DELIRIUM [None]
  - DEMENTIA [None]
  - DILATATION ATRIAL [None]
  - DILATATION VENTRICULAR [None]
  - EJECTION FRACTION DECREASED [None]
  - FALL [None]
  - HEART RATE IRREGULAR [None]
  - LETHARGY [None]
  - MALIGNANT NEOPLASM PROGRESSION [None]
  - MENTAL STATUS CHANGES [None]
  - METASTATIC MALIGNANT MELANOMA [None]
  - MITRAL VALVE INCOMPETENCE [None]
  - ORAL INTAKE REDUCED [None]
  - PULMONARY HYPERTENSION [None]
  - TRICUSPID VALVE INCOMPETENCE [None]
  - URINARY RETENTION [None]
  - VENTRICULAR HYPOKINESIA [None]
